FAERS Safety Report 4863134-3 (Version None)
Quarter: 2005Q4

REPORT INFORMATION
  Report Type: 
  Country: None (occurrence: None)
  Receive Date: 20051201
  Receipt Date: 20051009
  Transmission Date: 20060501
  Serious: No
  Sender: FDA-Public Use
  Company Number: 32731

PATIENT
  Sex: Female

DRUGS (1)
  1. NEVANAC [Suspect]

REACTIONS (4)
  - CORNEAL ABRASION [None]
  - OCULAR HYPERAEMIA [None]
  - VISION BLURRED [None]
  - VISUAL ACUITY REDUCED [None]
